FAERS Safety Report 24028360 (Version 1)
Quarter: 2024Q2

REPORT INFORMATION
  Report Type: Spontaneous
  Country: US (occurrence: US)
  Receive Date: 20240628
  Receipt Date: 20240628
  Transmission Date: 20240716
  Serious: Yes (Other)
  Sender: FDA-Public Use
  Company Number: US-STRIDES ARCOLAB LIMITED-2024SP002004

PATIENT
  Age: 68 Year
  Sex: Female

DRUGS (6)
  1. MELOXICAM [Suspect]
     Active Substance: MELOXICAM
     Indication: Osteoarthritis
     Dosage: UNK, (THE PATIENT HAD BEEN RECEIVING FOR 1 YEAR)
     Route: 065
  2. ALENDRONATE [Suspect]
     Active Substance: ALENDRONATE SODIUM
     Indication: Osteoporosis
     Dosage: UNK, (THE PATIENT HAD BEEN RECEIVING FOR 4 YEAR.)
     Route: 065
  3. NITROFURANTOIN [Concomitant]
     Active Substance: NITROFURANTOIN
     Indication: Urinary tract infection
     Dosage: UNK, (THE PATIENT HAD BEEN RECEIVING FOR 4 YEAR.)
     Route: 065
  4. CLOPIDOGREL [Concomitant]
     Active Substance: CLOPIDOGREL BISULFATE
     Indication: Cerebrovascular accident
     Dosage: UNK, (THE PATIENT HAD BEEN RECEIVING FOR 3 YEARS.)
     Route: 065
  5. VERAPAMIL [Concomitant]
     Active Substance: VERAPAMIL HYDROCHLORIDE
     Indication: Hypertension
     Dosage: UNK, (THE PATIENT HAD BEEN RECEIVING FOR 3 YEARS)
     Route: 065
  6. SUMATRIPTAN [Concomitant]
     Active Substance: SUMATRIPTAN
     Indication: Migraine
     Dosage: UNK, (THE PATIENT HAD BEEN RECEIVING FOR 3 YEARS.)
     Route: 065

REACTIONS (1)
  - Drug-induced liver injury [Unknown]
